FAERS Safety Report 16806522 (Version 2)
Quarter: 2019Q4

REPORT INFORMATION
  Report Type: Spontaneous
  Country: PT (occurrence: PT)
  Receive Date: 20190913
  Receipt Date: 20191028
  Transmission Date: 20200122
  Serious: Yes (Death, Other)
  Sender: FDA-Public Use
  Company Number: PT-ASTRAZENECA-2019SF29928

PATIENT
  Age: 73 Year
  Sex: Male

DRUGS (7)
  1. CARTIA [Concomitant]
  2. LORENIN [Concomitant]
     Active Substance: LORAZEPAM
  3. CONCOR [Concomitant]
     Active Substance: BISOPROLOL FUMARATE
  4. PLAVIX [Concomitant]
     Active Substance: CLOPIDOGREL BISULFATE
  5. METFORMIN [Concomitant]
     Active Substance: METFORMIN HYDROCHLORIDE
  6. JANUVIA [Concomitant]
     Active Substance: SITAGLIPTIN PHOSPHATE
  7. DURVALUMAB. [Suspect]
     Active Substance: DURVALUMAB
     Indication: NON-SMALL CELL LUNG CANCER
     Route: 042
     Dates: start: 20190725

REACTIONS (7)
  - Vascular neoplasm [Fatal]
  - Radiation pneumonitis [Unknown]
  - Haemoptysis [Fatal]
  - Anaemia [Unknown]
  - Immune-mediated pneumonitis [Unknown]
  - Fatigue [Unknown]
  - Pyrexia [Unknown]

NARRATIVE: CASE EVENT DATE: 20190814
